FAERS Safety Report 19084829 (Version 5)
Quarter: 2021Q3

REPORT INFORMATION
  Report Type: Report from Study
  Country: US (occurrence: US)
  Receive Date: 20210401
  Receipt Date: 20210710
  Transmission Date: 20211014
  Serious: No
  Sender: FDA-Public Use
  Company Number: NVSC2021US073582

PATIENT
  Age: 70 Year
  Sex: Female

DRUGS (1)
  1. ENTRESTO [Suspect]
     Active Substance: SACUBITRIL\VALSARTAN
     Indication: PRODUCT USED FOR UNKNOWN INDICATION
     Dosage: 100 MG, BID (49/51 MG)
     Route: 048

REACTIONS (10)
  - Blood glucose decreased [Unknown]
  - Muscle spasms [Unknown]
  - Bundle branch block [Unknown]
  - Echocardiogram abnormal [Unknown]
  - Tension [Unknown]
  - Heart rate increased [Unknown]
  - Ejection fraction [Unknown]
  - Blood pressure increased [Unknown]
  - Headache [Unknown]
  - Back pain [Unknown]

NARRATIVE: CASE EVENT DATE: 20210322
